FAERS Safety Report 24402685 (Version 2)
Quarter: 2024Q4

REPORT INFORMATION
  Report Type: Spontaneous
  Country: US (occurrence: US)
  Receive Date: 20241007
  Receipt Date: 20241014
  Transmission Date: 20250115
  Serious: Yes (Hospitalization, Other)
  Sender: BRISTOL-MYERS SQUIBB COMPANY
  Company Number: US-BRISTOL-MYERS SQUIBB COMPANY-2024-157305

PATIENT
  Age: 74 Year
  Sex: Male
  Weight: 101.15 kg

DRUGS (1)
  1. POMALYST [Suspect]
     Active Substance: POMALIDOMIDE
     Indication: Plasma cell myeloma
     Dosage: ONCE DAILY FOR 21 DAYS THEN 7 DAYS OFF
     Route: 048

REACTIONS (3)
  - COVID-19 [Recovering/Resolving]
  - Dehydration [Unknown]
  - Acute kidney injury [Unknown]
